FAERS Safety Report 23237898 (Version 4)
Quarter: 2024Q1

REPORT INFORMATION
  Report Type: Spontaneous
  Country: CN (occurrence: CN)
  Receive Date: 20231128
  Receipt Date: 20240206
  Transmission Date: 20240410
  Serious: Yes (Other)
  Sender: FDA-Public Use
  Company Number: CN-BoehringerIngelheim-2023-BI-274565

PATIENT
  Age: 64 Year
  Sex: Male
  Weight: 72.5 kg

DRUGS (10)
  1. GILOTRIF [Suspect]
     Active Substance: AFATINIB
     Indication: Lung adenocarcinoma
     Route: 048
     Dates: start: 20221130, end: 20221222
  2. GILOTRIF [Suspect]
     Active Substance: AFATINIB
     Indication: K-ras gene mutation
     Route: 048
     Dates: start: 20221225, end: 20231122
  3. GILOTRIF [Suspect]
     Active Substance: AFATINIB
     Indication: Metastases to central nervous system
     Route: 048
     Dates: start: 20231125
  4. D-1553 [Suspect]
     Active Substance: D-1553
     Indication: Lung adenocarcinoma
     Route: 048
     Dates: start: 20221130, end: 20221222
  5. D-1553 [Suspect]
     Active Substance: D-1553
     Indication: K-ras gene mutation
     Route: 048
     Dates: start: 20221225, end: 20231122
  6. D-1553 [Suspect]
     Active Substance: D-1553
     Indication: Metastases to central nervous system
     Route: 048
     Dates: start: 20231126
  7. THYMALFASIN [Concomitant]
     Active Substance: THYMALFASIN
     Indication: Immune enhancement therapy
     Route: 058
  8. Niaoduqing Granule (traditional Chinese medicine) [Concomitant]
     Indication: Blood creatinine increased
     Dosage: FREQUENCY: 1 ON 0.25 PER DAY
     Route: 048
     Dates: start: 20231121
  9. ENOXAPARIN SODIUM [Concomitant]
     Active Substance: ENOXAPARIN SODIUM
     Indication: Thrombosis prophylaxis
     Route: 058
     Dates: start: 20231121, end: 20231121
  10. Pantoprazole Sodium Enteric-Coated Tablets [Concomitant]
     Indication: Prophylaxis
     Route: 048
     Dates: start: 20231121

REACTIONS (19)
  - Myocardial infarction [Recovering/Resolving]
  - Diarrhoea [Recovered/Resolved]
  - Epistaxis [Recovered/Resolved]
  - Gingival bleeding [Recovered/Resolved]
  - COVID-19 [Recovered/Resolved]
  - Diarrhoea [Recovered/Resolved]
  - Skin ulcer [Not Recovered/Not Resolved]
  - Diarrhoea [Not Recovered/Not Resolved]
  - Rash [Recovered/Resolved]
  - Chest discomfort [Unknown]
  - Dyspnoea [Unknown]
  - Pain in extremity [Unknown]
  - Pain in extremity [Recovered/Resolved]
  - Paronychia [Not Recovered/Not Resolved]
  - Skin mass [Not Recovered/Not Resolved]
  - Rash pustular [Not Recovered/Not Resolved]
  - Granuloma [Unknown]
  - Pericardial effusion [Unknown]
  - Off label use [Unknown]

NARRATIVE: CASE EVENT DATE: 20221202
